FAERS Safety Report 10722960 (Version 2)
Quarter: 2015Q1

REPORT INFORMATION
  Report Type: Spontaneous
  Country: US (occurrence: US)
  Receive Date: 20150120
  Receipt Date: 20150128
  Transmission Date: 20150721
  Serious: Yes (Death, Other)
  Sender: FDA-Public Use
  Company Number: US-RECORDATI RARE DISEASES-US-R13005-15-00003

PATIENT
  Age: 16 Year
  Sex: Female

DRUGS (7)
  1. METHOTREXATE [Suspect]
     Active Substance: METHOTREXATE
     Indication: B PRECURSOR TYPE ACUTE LEUKAEMIA
     Route: 037
     Dates: start: 2012
  2. CRYOPRECIPITATE [Concomitant]
     Active Substance: ANTIHEMOPHILIC FACTOR HUMAN\FIBRINOGEN HUMAN\FACTOR XIII CONCENTRATE (HUMAN)\VON WILLEBRAND FACTOR HUMAN
     Indication: SUPPORTIVE CARE
     Route: 065
     Dates: start: 2012
  3. ASPARAGINASE [Suspect]
     Active Substance: ASPARAGINASE
     Indication: B PRECURSOR TYPE ACUTE LEUKAEMIA
     Dosage: 6000 IU/M2
     Route: 065
     Dates: start: 2012
  4. VINCRISTINE [Suspect]
     Active Substance: VINCRISTINE
     Indication: B PRECURSOR TYPE ACUTE LEUKAEMIA
     Dosage: 2MG WEEKLY X 4 DOSES
     Route: 065
     Dates: start: 2012
  5. PREDNISOLONE. [Suspect]
     Active Substance: PREDNISOLONE
     Indication: B PRECURSOR TYPE ACUTE LEUKAEMIA
     Route: 065
     Dates: start: 2012
  6. FRESH FROZEN PLASMA [Concomitant]
     Active Substance: HUMAN PLASMA
     Indication: SUPPORTIVE CARE
     Route: 065
     Dates: start: 2012
  7. DAUNORUBICIN [Suspect]
     Active Substance: DAUNORUBICIN
     Indication: B PRECURSOR TYPE ACUTE LEUKAEMIA
     Route: 065
     Dates: start: 2012

REACTIONS (6)
  - Abortion spontaneous complete [Unknown]
  - Maternal exposure during pregnancy [None]
  - Blood fibrinogen decreased [None]
  - Exposure during pregnancy [Unknown]
  - Pulmonary haemorrhage [None]
  - Platelet count decreased [None]

NARRATIVE: CASE EVENT DATE: 2012
